FAERS Safety Report 4269996-5 (Version None)
Quarter: 2004Q1

REPORT INFORMATION
  Report Type: 
  Country: None (occurrence: None)
  Receive Date: 20040113
  Receipt Date: 20040113
  Transmission Date: 20041129
  Serious: Yes (Hospitalization)
  Sender: FDA-Public Use
  Company Number: None

PATIENT
  Age: 53 Year
  Sex: Male
  Weight: 63.6 kg

DRUGS (3)
  1. ABACAVIR SULFATE [Suspect]
     Indication: HIV INFECTION
     Dosage: 600 MG, 300 MG BID , ORAL
     Route: 048
     Dates: start: 20030326, end: 20031201
  2. LAMIVUDINE [Concomitant]
  3. ZIDOVUDINE [Concomitant]

REACTIONS (1)
  - RASH [None]
